FAERS Safety Report 22000409 (Version 1)
Quarter: 2023Q1

REPORT INFORMATION
  Report Type: Spontaneous
  Country: US (occurrence: None)
  Receive Date: 20230215
  Receipt Date: 20230215
  Transmission Date: 20230418
  Serious: Yes (Death, Life-Threatening, Hospitalization)
  Sender: FDA-Public Use
  Company Number: None

PATIENT
  Age: 42 Year
  Sex: Male
  Weight: 67.64 kg

DRUGS (2)
  1. DIVALPROEX SODIUM ER [Suspect]
     Active Substance: DIVALPROEX SODIUM
     Indication: Affective disorder
     Dosage: FREQUENCY : AT BEDTIME;?
     Route: 048
     Dates: start: 20221220, end: 20230106
  2. DIVALPROEX SODIUM ER [Suspect]
     Active Substance: DIVALPROEX SODIUM
     Indication: Affective disorder
     Dosage: FREQUENCY : AT BEDTIME;?
     Route: 048
     Dates: start: 20221220, end: 20230106

REACTIONS (7)
  - Anticonvulsant drug level increased [None]
  - Dyskinesia [None]
  - Cerebrovascular accident [None]
  - Unresponsive to stimuli [None]
  - Seizure [None]
  - General physical health deterioration [None]
  - Ammonia increased [None]

NARRATIVE: CASE EVENT DATE: 20221229
